FAERS Safety Report 19579259 (Version 1)
Quarter: 2021Q3

REPORT INFORMATION
  Report Type: Other
  Country: US (occurrence: US)
  Receive Date: 20210720
  Receipt Date: 20210720
  Transmission Date: 20211014
  Serious: Yes (Other)
  Sender: FDA-Public Use
  Company Number: US-ROCHE-2870280

PATIENT
  Age: 73 Year
  Sex: Female

DRUGS (1)
  1. OCREVUS [Suspect]
     Active Substance: OCRELIZUMAB
     Indication: RELAPSING-REMITTING MULTIPLE SCLEROSIS
     Dosage: ONGOING: NO, INFUSE 300MG ON DAY 1, INFUSE 300MG ON DAY 15, DATE OF TREATMENT: 2017?10?31, 2019?09?2
     Route: 042
     Dates: start: 2018, end: 202010

REACTIONS (2)
  - COVID-19 [Unknown]
  - Hip fracture [Unknown]

NARRATIVE: CASE EVENT DATE: 202012
